FAERS Safety Report 9159518 (Version 1)
Quarter: 2013Q1

REPORT INFORMATION
  Report Type: Spontaneous
  Country: US (occurrence: None)
  Receive Date: 20130214
  Receipt Date: 20130214
  Transmission Date: 20140127
  Serious: Yes (Life-Threatening)
  Sender: FDA-Public Use
  Company Number: 001478338A

PATIENT
  Age: 55 Year
  Sex: Female

DRUGS (4)
  1. PROACTIV RENEWING CLEANSER [Suspect]
     Indication: ACNE
     Dosage: TWICE DAILY DERMAL
  2. PROACTIV REPAIRING TREATMENT [Suspect]
     Indication: ACNE
     Dosage: TWICE DAILY DERMAL
     Dates: start: 20121102, end: 20121104
  3. PROACTIV SALICYLIC ACID SPOT TREATMENT [Suspect]
     Indication: ACNE
     Dosage: TWICE DAILY DERMAL
     Dates: start: 20121102, end: 20121104
  4. LEVOTHYROXINE [Concomitant]

REACTIONS (7)
  - Dry skin [None]
  - Erythema [None]
  - Urticaria [None]
  - Eye swelling [None]
  - Swelling face [None]
  - Lip swelling [None]
  - Throat tightness [None]
